FAERS Safety Report 10262310 (Version 1)
Quarter: 2014Q2

REPORT INFORMATION
  Report Type: Report from Study
  Country: BR (occurrence: BR)
  Receive Date: 20140626
  Receipt Date: 20140626
  Transmission Date: 20141212
  Serious: Yes (Disabling)
  Sender: FDA-Public Use
  Company Number: BR-BAYER-2014-091718

PATIENT
  Sex: Female

DRUGS (10)
  1. BETAFERON [Suspect]
     Indication: RELAPSING-REMITTING MULTIPLE SCLEROSIS
     Dosage: UNK
     Dates: start: 2002
  2. BETAFERON [Suspect]
     Indication: RELAPSING-REMITTING MULTIPLE SCLEROSIS
     Dosage: 9.6 MIU, QOD
     Route: 058
  3. ESCITALOPRAM OXALATE [Concomitant]
     Indication: DEPRESSION
     Dosage: 20 MG, UNK
     Route: 048
     Dates: start: 2014
  4. OMEGA 3 [Concomitant]
     Indication: RELAPSING-REMITTING MULTIPLE SCLEROSIS
     Dosage: 3 DF, OM
     Route: 048
     Dates: start: 1999
  5. CITONEURIN [Concomitant]
     Indication: ASTHENIA
     Dosage: 1 DF, 30 MIN AFTER BREAKFAST
     Route: 048
     Dates: start: 1999
  6. VITAMIN C [Concomitant]
     Indication: ANTIINFLAMMATORY THERAPY
     Dosage: 1 DF, QD
     Route: 048
     Dates: start: 1999
  7. PURAN T4 [Concomitant]
     Indication: HYPOTHYROIDISM
     Dosage: 1 DF, QD
     Route: 048
     Dates: start: 2006
  8. VITAMIN D [Concomitant]
     Indication: MUSCULAR WEAKNESS
     Dosage: 1 DF, OM
     Route: 048
     Dates: start: 2010
  9. VITAMIN D [Concomitant]
     Indication: GAIT DISTURBANCE
  10. FLUOXETINE [Concomitant]
     Indication: DEPRESSION
     Dosage: 2 DF, QD
     Dates: end: 2014

REACTIONS (11)
  - Hemiparesis [Not Recovered/Not Resolved]
  - Gait deviation [None]
  - Exostosis [None]
  - Back pain [None]
  - Balance disorder [Not Recovered/Not Resolved]
  - Pain in extremity [Not Recovered/Not Resolved]
  - Fall [Not Recovered/Not Resolved]
  - Pyrexia [Recovered/Resolved]
  - Pain [Recovered/Resolved]
  - Asthenia [Recovered/Resolved]
  - Muscle contractions involuntary [Recovered/Resolved]
